FAERS Safety Report 4392688-9 (Version None)
Quarter: 2004Q3

REPORT INFORMATION
  Report Type: 
  Country: None (occurrence: None)
  Receive Date: 20040702
  Receipt Date: 20040618
  Transmission Date: 20050211
  Serious: Yes (Hospitalization, Other)
  Sender: FDA-Public Use
  Company Number: 237556

PATIENT
  Sex: Male
  Weight: 4.7 kg

DRUGS (10)
  1. ACTRAPID PENFILL HM (GE) 3 ML (INSULIN HUMAN) SOLUTION FOR INJECTION, [Suspect]
     Indication: DIABETES MELLITUS INSULIN-DEPENDENT
     Dosage: 114 IU,QD, QD, INTRAUTERINE
     Route: 015
     Dates: start: 20031115
  2. INSULATARD HM PENFILL (INSULIN HUMAN) SUSPENSION FOR INJECTION [Concomitant]
  3. MATERNA 1.60 (DOCUSATE SODIUM, MINERAL NOS, VITAMINS NOS) [Concomitant]
  4. LIDOCAIN ^EGIS^ (LIDOCAINE HYDROCHLORIDE) [Concomitant]
  5. MARCAINE [Concomitant]
  6. FRAXIPARINE  /FRA/(HEPARIN-RACTION, CALCIUM SLAT) [Concomitant]
  7. FENTANYL [Concomitant]
  8. DEGAN (METOCLOPRAMIDE HYDROCHLORIDE) [Concomitant]
  9. RINGER (CALCIUM CHLORIDE DIHYDRATE, POTASSIUM CHLORIDE, SODIUM CHLORID [Concomitant]
  10. CALCIUM GLUCONATE (CALCIUM GLUCONANTE) [Concomitant]

REACTIONS (5)
  - BLOOD CALCIUM DECREASED [None]
  - CAESAREAN SECTION [None]
  - HYPOGLYCAEMIA NEONATAL [None]
  - MATERNAL DRUGS AFFECTING FOETUS [None]
  - NEONATAL DISORDER [None]
